FAERS Safety Report 4367591-0 (Version None)
Quarter: 2004Q2

REPORT INFORMATION
  Report Type: 
  Country: None (occurrence: None)
  Receive Date: 20040601
  Receipt Date: 20030130
  Transmission Date: 20050107
  Serious: Yes (Death)
  Sender: FDA-Public Use
  Company Number: US-MERCK-0302USA00074

PATIENT
  Age: 83 Year
  Sex: Female

DRUGS (7)
  1. AZOPT DROPS [Concomitant]
     Route: 065
  2. OCUPRESS [Concomitant]
     Route: 065
  3. PREMPRO [Concomitant]
     Route: 065
     Dates: end: 20010301
  4. MAXZIDE [Concomitant]
     Route: 065
     Dates: end: 20010801
  5. LEVOXYL [Concomitant]
     Route: 065
  6. VIOXX [Suspect]
     Indication: ARTHRALGIA
     Route: 048
     Dates: start: 20001101, end: 20010701
  7. VIOXX [Suspect]
     Indication: ARTHRITIS
     Route: 048
     Dates: start: 20001101, end: 20010701

REACTIONS (18)
  - ADVERSE EVENT [None]
  - ALOPECIA [None]
  - ANAEMIA [None]
  - ASTHENIA [None]
  - ATRIAL BIGEMINY [None]
  - BLOOD CREATININE INCREASED [None]
  - BLOOD UREA INCREASED [None]
  - BUNDLE BRANCH BLOCK LEFT [None]
  - DEATH [None]
  - DECREASED APPETITE [None]
  - DIZZINESS POSTURAL [None]
  - FALL [None]
  - HEAD INJURY [None]
  - INJURY [None]
  - LACERATION [None]
  - LIMB INJURY [None]
  - SKIN LACERATION [None]
  - URINARY RETENTION [None]
